FAERS Safety Report 8609739-5 (Version None)
Quarter: 2012Q3

REPORT INFORMATION
  Report Type: 
  Country: None (occurrence: None)
  Receive Date: 20120821
  Receipt Date: 20120819
  Transmission Date: 20120928
  Serious: Yes (Hospitalization)
  Sender: FDA-Public Use
  Company Number: US-BAYER-2012-085932

PATIENT
  Age: 66 Year
  Sex: Male
  Weight: 79 kg

DRUGS (1)
  1. ALEVE (CAPLET) [Suspect]
     Indication: ANALGESIC THERAPY
     Dosage: DAILY DOSE 2 DF
     Route: 048
     Dates: start: 19960101, end: 20100101

REACTIONS (3)
  - GASTRIC HAEMORRHAGE [None]
  - HAEMORRHAGE [None]
  - HAEMATOCHEZIA [None]
